FAERS Safety Report 15693807 (Version 1)
Quarter: 2018Q4

REPORT INFORMATION
  Report Type: Report from Study
  Country: KR (occurrence: KR)
  Receive Date: 20181206
  Receipt Date: 20181206
  Transmission Date: 20190205
  Serious: Yes (Hospitalization)
  Sender: FDA-Public Use
  Company Number: KR-GLAXOSMITHKLINE-KR2018GSK202783

PATIENT
  Age: 66 Year
  Sex: Male
  Weight: 58 kg

DRUGS (8)
  1. ASIMA [Concomitant]
     Active Substance: DOXOFYLLINE
     Indication: CHRONIC OBSTRUCTIVE PULMONARY DISEASE
     Dosage: 400 MG, BID
     Route: 048
     Dates: start: 20170410
  2. NEMEOL [Concomitant]
     Indication: EPIGASTRIC DISCOMFORT
     Dosage: 20 MG, QD
     Route: 048
     Dates: start: 20180531, end: 20180606
  3. UMECLIDINIUM BROMIDE [Suspect]
     Active Substance: UMECLIDINIUM BROMIDE
     Indication: CHRONIC OBSTRUCTIVE PULMONARY DISEASE
     Dosage: 62.5 UG, QD
     Dates: start: 20180503
  4. VENTOLIN [Concomitant]
     Active Substance: ALBUTEROL SULFATE
     Indication: CHRONIC OBSTRUCTIVE PULMONARY DISEASE
     Dosage: UNK AS REQUIRED, BID
     Route: 055
     Dates: start: 20170112
  5. DAXAS [Concomitant]
     Active Substance: ROFLUMILAST
     Indication: CHRONIC OBSTRUCTIVE PULMONARY DISEASE
     Dosage: 500 UG, QD
     Route: 048
     Dates: start: 20140110
  6. ATACAND [Concomitant]
     Active Substance: CANDESARTAN CILEXETIL
     Indication: VENTRICULAR EXTRASYSTOLES
     Dosage: 4 MG, QD
     Route: 048
     Dates: start: 20180531
  7. RELVAR [Concomitant]
     Active Substance: FLUTICASONE FUROATE\VILANTEROL TRIFENATATE
     Indication: CHRONIC OBSTRUCTIVE PULMONARY DISEASE
     Dosage: 1 PUFF(S), QD
     Route: 055
     Dates: start: 20180503
  8. NEBISTOL [Concomitant]
     Indication: VENTRICULAR EXTRASYSTOLES
     Dosage: 1.25 MG, QD
     Route: 048
     Dates: start: 20180531

REACTIONS (1)
  - Chronic obstructive pulmonary disease [Recovered/Resolved]

NARRATIVE: CASE EVENT DATE: 20180605
